FAERS Safety Report 6594428-1 (Version None)
Quarter: 2010Q1

REPORT INFORMATION
  Report Type: 
  Country: None (occurrence: None)
  Receive Date: 20100222
  Receipt Date: 20100216
  Transmission Date: 20100710
  Serious: Yes (Hospitalization)
  Sender: FDA-Public Use
  Company Number: B0635137A

PATIENT
  Sex: Male

DRUGS (2)
  1. TOPOTECAN [Suspect]
     Indication: NEUROBLASTOMA
     Dosage: 3.26MG CUMULATIVE DOSE
     Route: 042
     Dates: start: 20100119
  2. TEMOZOLOMIDE [Suspect]
     Indication: NEUROBLASTOMA
     Dosage: 652.5MG CUMULATIVE DOSE
     Route: 048
     Dates: start: 20100119

REACTIONS (5)
  - ASTHENIA [None]
  - DIARRHOEA [None]
  - GASTROENTERITIS [None]
  - PYREXIA [None]
  - VOMITING [None]
